FAERS Safety Report 5454295-6 (Version None)
Quarter: 2007Q3

REPORT INFORMATION
  Report Type: 
  Country: None (occurrence: None)
  Receive Date: 20070917
  Receipt Date: 20070228
  Transmission Date: 20080115
  Serious: Yes (Hospitalization)
  Sender: FDA-Public Use
  Company Number: US-ASTRAZENECA-2006UW12193

PATIENT
  Age: 17845 Day
  Sex: Male
  Weight: 118.2 kg

DRUGS (5)
  1. SEROQUEL [Suspect]
     Indication: DEPRESSION
     Route: 048
     Dates: start: 20010101
  2. SEROQUEL [Suspect]
     Route: 048
     Dates: start: 20020101, end: 20030101
  3. SEROQUEL [Suspect]
     Route: 048
     Dates: start: 20030101, end: 20050101
  4. SEROQUEL [Suspect]
     Route: 048
  5. ZYPREXA [Suspect]

REACTIONS (1)
  - DIABETES MELLITUS [None]
